FAERS Safety Report 14983847 (Version 1)
Quarter: 2018Q2

REPORT INFORMATION
  Report Type: Spontaneous
  Country: US (occurrence: US)
  Receive Date: 20180515
  Receipt Date: 20180515
  Transmission Date: 20180711
  Serious: No
  Sender: FDA-Public Use
  Company Number: None

PATIENT
  Age: 49 Year
  Sex: Female
  Weight: 81.65 kg

DRUGS (6)
  1. CIPROFLOXACIN. [Suspect]
     Active Substance: CIPROFLOXACIN
     Indication: ABDOMINAL PAIN
     Dosage: ?          QUANTITY:1 DF DOSAGE FORM;?
     Route: 048
     Dates: start: 20131024, end: 20131103
  2. PROTEIN POWDER W/PROBIOTICS [Concomitant]
  3. RISPERIDONE. [Concomitant]
     Active Substance: RISPERIDONE
  4. CIPROFLOXACIN. [Suspect]
     Active Substance: CIPROFLOXACIN
     Indication: URINARY TRACT INFECTION
     Dosage: ?          QUANTITY:1 DF DOSAGE FORM;?
     Route: 048
     Dates: start: 20131024, end: 20131103
  5. CRANBERRY URINARY TRACT SUPPLEMENT [Concomitant]
  6. BONE SUPPORT [Concomitant]

REACTIONS (4)
  - Pain in extremity [None]
  - Tendon disorder [None]
  - Plantar fasciitis [None]
  - Contraindicated drug prescribed [None]

NARRATIVE: CASE EVENT DATE: 201310
